FAERS Safety Report 8594207 (Version 3)
Quarter: 2012Q4

REPORT INFORMATION
  Report Type: 
  Country: US (occurrence: US)
  Receive Date: 20120604
  Receipt Date: 20121115
  Transmission Date: 20130627
  Serious: Yes (Other)
  Sender: FDA-Public Use
  Company Number: US-SANOFI-AVENTIS-2012SA036476

PATIENT
  Age: 54 Year
  Sex: Male
  Weight: 64 kg

DRUGS (10)
  1. PLAVIX [Suspect]
     Indication: STENT PLACEMENT
     Route: 048
     Dates: start: 200609, end: 2012
  2. AMLODIPINE [Concomitant]
  3. LISINOPRIL [Concomitant]
  4. RANITIDINE [Concomitant]
     Indication: HEARTBURN
     Dates: start: 2012
  5. PREVACID [Concomitant]
  6. NEBIVOLOL [Concomitant]
  7. ASPIRIN [Concomitant]
  8. METOPROLOL [Concomitant]
  9. METFORMIN [Concomitant]
  10. PRAVASTATIN [Concomitant]

REACTIONS (4)
  - Coronary artery occlusion [Unknown]
  - Chest pain [Unknown]
  - Drug ineffective [Unknown]
  - Dyspepsia [Unknown]
